FAERS Safety Report 15988659 (Version 2)
Quarter: 2019Q1

REPORT INFORMATION
  Report Type: Spontaneous
  Country: US (occurrence: US)
  Receive Date: 20190221
  Receipt Date: 20190304
  Transmission Date: 20190418
  Serious: Yes (Other)
  Sender: FDA-Public Use
  Company Number: US-ROCHE-2263488

PATIENT
  Age: 71 Year
  Sex: Female
  Weight: 95.79 kg

DRUGS (30)
  1. SOLU-MEDROL [Suspect]
     Active Substance: METHYLPREDNISOLONE SODIUM SUCCINATE
     Indication: PREMEDICATION
     Dosage: ONGOING:YES
     Route: 042
     Dates: start: 20190207
  2. BUMETANIDE. [Concomitant]
     Active Substance: BUMETANIDE
     Indication: FLUID RETENTION
     Dosage: 1MG 2X^S DAY, 2MG IN THE AM ONLY ;ONGOING: YES
     Route: 065
  3. PREDNISONE. [Concomitant]
     Active Substance: PREDNISONE
     Indication: RHEUMATOID ARTHRITIS
     Dosage: ONGOING:YES
     Route: 065
  4. CODEINE [Concomitant]
     Active Substance: CODEINE
     Indication: ARTHRALGIA
     Dosage: ONGOING:YES
     Route: 065
  5. BENADRYL [Suspect]
     Active Substance: DIPHENHYDRAMINE HYDROCHLORIDE
     Indication: PREMEDICATION
     Dosage: ONGOING:YES
     Route: 065
     Dates: start: 20190207
  6. ALBUTEROL. [Concomitant]
     Active Substance: ALBUTEROL
     Indication: ASTHMA
     Dosage: ONGOING:YES
     Route: 065
  7. PILOCARPINE. [Concomitant]
     Active Substance: PILOCARPINE
     Indication: SJOGREN^S SYNDROME
     Dosage: ONGOING:YES
     Route: 065
  8. COENZYME Q10 [Concomitant]
     Active Substance: UBIDECARENONE
     Dosage: ONGOING:YES
     Route: 065
  9. METFORMIN [Concomitant]
     Active Substance: METFORMIN HYDROCHLORIDE
     Indication: TYPE 2 DIABETES MELLITUS
     Dosage: ONGOING:YES
     Route: 065
  10. ENTERIC COATED ASPIRIN [Concomitant]
     Active Substance: ASPIRIN
     Dosage: AT BEDTIME ;ONGOING: YES
     Route: 065
  11. CHROMIUM PICOLINATE [Concomitant]
     Active Substance: CHROMIUM PICOLINATE
     Dosage: AT BEDTIME ;ONGOING: YES
     Route: 065
  12. VITAMIN B COMPLEX [Concomitant]
     Active Substance: CYANOCOBALAMIN\DEXPANTHENOL\NIACINAMIDE\PYRIDOXINE HYDROCHLORIDE\RIBOFLAVIN 5^-PHOSPHATE SODIUM\THIAMINE HYDROCHLORIDE\VITAMIN B COMPLEX
     Dosage: ONGOING:YES
     Route: 065
  13. RESTASIS [Concomitant]
     Active Substance: CYCLOSPORINE
     Indication: SJOGREN^S SYNDROME
     Dosage: ONGOING:YES
     Route: 065
  14. HUMALOG CARTRIDGE [Concomitant]
     Active Substance: INSULIN LISPRO
     Indication: TYPE 2 DIABETES MELLITUS
     Dosage: ON INSULIN FOR OVER 10 YEARS ;ONGOING: YES
     Route: 065
  15. DULOXETINE. [Concomitant]
     Active Substance: DULOXETINE
     Indication: PAIN
     Dosage: AT BEDTIME ;ONGOING: YES
     Route: 065
  16. SYMBICORT [Concomitant]
     Active Substance: BUDESONIDE\FORMOTEROL FUMARATE DIHYDRATE
     Indication: ASTHMA
     Dosage: ONGOING:YES
     Route: 065
  17. NITROGLYCERIN. [Concomitant]
     Active Substance: NITROGLYCERIN
     Indication: ANGINA PECTORIS
     Route: 065
  18. RITUXAN [Suspect]
     Active Substance: RITUXIMAB
     Indication: MULTIPLE SCLEROSIS
     Dosage: INITIAL DOSE, 2ND DOSE 2 WEEKS, THEN 6 MO, REPEAT ;ONGOING: YES
     Route: 041
     Dates: start: 20190207
  19. SPIRONOLACTONE. [Concomitant]
     Active Substance: SPIRONOLACTONE
     Indication: FLUID RETENTION
     Dosage: ONGOING:YES
     Route: 065
  20. METHOTREXATE. [Concomitant]
     Active Substance: METHOTREXATE
     Indication: RHEUMATOID ARTHRITIS
     Dosage: 0.8 CC ;ONGOING: YES
     Route: 065
  21. CRANBERRY. [Concomitant]
     Active Substance: CRANBERRY
     Dosage: AT BEDTIME ;ONGOING: YES
     Route: 065
  22. CINNAMON. [Concomitant]
     Active Substance: CINNAMON
     Indication: BLOOD GLUCOSE INCREASED
     Dosage: ONGOING:YES
     Route: 065
  23. NITROGLYCERIN. [Concomitant]
     Active Substance: NITROGLYCERIN
     Indication: CHEST PAIN
  24. LEVOTHYROXINE. [Concomitant]
     Active Substance: LEVOTHYROXINE
     Dosage: 0.125 MG AT BEDTIME ;ONGOING: YES
     Route: 065
  25. XOPENEX [Concomitant]
     Active Substance: LEVALBUTEROL HYDROCHLORIDE
     Indication: ASTHMA
     Dosage: NEBULIZER TREATMENTS ;ONGOING: YES
     Route: 065
  26. EPIPEN [Concomitant]
     Active Substance: EPINEPHRINE
     Indication: HYPERSENSITIVITY
     Dosage: ONGOING:YES
     Route: 065
  27. RITUXAN [Suspect]
     Active Substance: RITUXIMAB
     Indication: RHEUMATOID ARTHRITIS
  28. BUMETANIDE. [Concomitant]
     Active Substance: BUMETANIDE
     Dosage: IN THE MORNING
     Route: 065
  29. GLUCAGON. [Concomitant]
     Active Substance: GLUCAGON
     Indication: BLOOD GLUCOSE DECREASED
     Dosage: ONGOING:YES
     Route: 065
  30. BYSTOLIC [Concomitant]
     Active Substance: NEBIVOLOL HYDROCHLORIDE
     Indication: SINUS TACHYCARDIA
     Dosage: AT BEDTIME
     Route: 065

REACTIONS (2)
  - Fatigue [Unknown]
  - Sinus tachycardia [Unknown]

NARRATIVE: CASE EVENT DATE: 20190207
